FAERS Safety Report 25390221 (Version 1)
Quarter: 2025Q2

REPORT INFORMATION
  Report Type: Spontaneous
  Country: US (occurrence: None)
  Receive Date: 20250602
  Receipt Date: 20250602
  Transmission Date: 20250716
  Serious: Yes (Other)
  Sender: FDA-CTU
  Company Number: None

PATIENT
  Age: 25 Year
  Sex: Female
  Weight: 175.05 kg

DRUGS (11)
  1. WEGOVY [Suspect]
     Active Substance: SEMAGLUTIDE
     Indication: Obesity
     Route: 058
     Dates: start: 20240615, end: 20241216
  2. WEGOVY [Suspect]
     Active Substance: SEMAGLUTIDE
     Indication: Insulin resistance
  3. ZEPBOUND [Suspect]
     Active Substance: TIRZEPATIDE
     Route: 058
     Dates: end: 20250407
  4. LUVOX [Concomitant]
     Active Substance: FLUVOXAMINE MALEATE
  5. LAMICTAL [Concomitant]
     Active Substance: LAMOTRIGINE
  6. BENTYL [Concomitant]
     Active Substance: DICYCLOMINE HYDROCHLORIDE
  7. IMODIUM [Concomitant]
     Active Substance: LOPERAMIDE HYDROCHLORIDE
  8. PROPRANOLOL HYDROCHLORIDE [Concomitant]
     Active Substance: PROPRANOLOL HYDROCHLORIDE
  9. METFORMIN [Concomitant]
     Active Substance: METFORMIN HYDROCHLORIDE
  10. Tri-Lo [Concomitant]
  11. VITAMIN E [Concomitant]
     Active Substance: .ALPHA.-TOCOPHEROL

REACTIONS (4)
  - Hypomania [None]
  - Dissociation [None]
  - Blunted affect [None]
  - Self-injurious ideation [None]

NARRATIVE: CASE EVENT DATE: 20241209
